FAERS Safety Report 8478149-6 (Version None)
Quarter: 2012Q2

REPORT INFORMATION
  Report Type: 
  Country: None (occurrence: None)
  Receive Date: 20120629
  Receipt Date: 20120627
  Transmission Date: 20120825
  Serious: Yes (Other)
  Sender: FDA-Public Use
  Company Number: PHEH2012US012789

PATIENT
  Sex: Female
  Weight: 56.236 kg

DRUGS (3)
  1. ADDERALL 5 [Concomitant]
     Dosage: UNK UKN, UNK
  2. ZOLOFT [Concomitant]
     Dosage: UNK UKN, UNK
  3. GILENYA [Suspect]
     Indication: MULTIPLE SCLEROSIS
     Dosage: 0.5 MG, QD
     Route: 048
     Dates: start: 20120625

REACTIONS (7)
  - FLUSHING [None]
  - HEART RATE DECREASED [None]
  - BLOOD PRESSURE DECREASED [None]
  - CHEST PAIN [None]
  - GAIT DISTURBANCE [None]
  - DIZZINESS [None]
  - BLOOD PRESSURE INCREASED [None]
